FAERS Safety Report 8523426-3 (Version None)
Quarter: 2012Q3

REPORT INFORMATION
  Report Type: 
  Country: None (occurrence: None)
  Receive Date: 20120709
  Receipt Date: 20120625
  Transmission Date: 20120928
  Serious: Yes (Other)
  Sender: FDA-Public Use
  Company Number: 2012P1045435

PATIENT
  Age: 17 Year
  Sex: Male

DRUGS (1)
  1. ISOTRETINOIN [Suspect]
     Indication: ACNE
     Dosage: 30 MG;BID

REACTIONS (7)
  - RECTAL HAEMORRHAGE [None]
  - MUCOSAL DRYNESS [None]
  - CHEILITIS [None]
  - SKIN EXFOLIATION [None]
  - SCAR [None]
  - ANAL FISSURE [None]
  - XEROSIS [None]
